FAERS Safety Report 13960503 (Version 3)
Quarter: 2018Q1

REPORT INFORMATION
  Report Type: Spontaneous
  Country: US (occurrence: US)
  Receive Date: 20170912
  Receipt Date: 20180322
  Transmission Date: 20180508
  Serious: Yes (Death, Hospitalization)
  Sender: FDA-Public Use
  Company Number: US-PFIZER INC-2017386529

PATIENT
  Age: 76 Year
  Sex: Female
  Weight: 100.7 kg

DRUGS (2)
  1. XELJANZ [Suspect]
     Active Substance: TOFACITINIB CITRATE
     Indication: RHEUMATOID ARTHRITIS
     Dosage: 5 MG, 2X/DAY
     Route: 048
     Dates: start: 201707
  2. XELJANZ [Suspect]
     Active Substance: TOFACITINIB CITRATE
     Indication: ARTHRITIS

REACTIONS (6)
  - Nausea [Unknown]
  - Colon cancer metastatic [Fatal]
  - Intestinal perforation [Fatal]
  - Wrong drug administered [Unknown]
  - Inappropriate schedule of drug administration [Unknown]
  - Gastroenteritis viral [Unknown]
